FAERS Safety Report 17238574 (Version 2)
Quarter: 2020Q2

REPORT INFORMATION
  Report Type: Report from Study
  Country: BE (occurrence: BE)
  Receive Date: 20200106
  Receipt Date: 20200511
  Transmission Date: 20200713
  Serious: Yes (Other)
  Sender: FDA-Public Use
  Company Number: BE-INCYTE CORPORATION-2019IN004633

PATIENT

DRUGS (11)
  1. COZAAR [Concomitant]
     Active Substance: LOSARTAN POTASSIUM
     Indication: HYPERTENSION
     Dosage: 50 OT
     Route: 065
     Dates: start: 20120315
  2. METFORMAX [Concomitant]
     Active Substance: METFORMIN HYDROCHLORIDE
     Indication: TYPE 2 DIABETES MELLITUS
     Dosage: 850 OT
     Route: 065
     Dates: start: 20130814
  3. JAKAVI [Suspect]
     Active Substance: RUXOLITINIB
     Dosage: 30 MG, BID
     Route: 048
     Dates: start: 20190213, end: 201907
  4. JAKAVI [Suspect]
     Active Substance: RUXOLITINIB
     Indication: POLYCYTHAEMIA VERA
     Dosage: 20 MG, BID
     Route: 048
     Dates: start: 20190116, end: 20190212
  5. ATORSTATINEG [Concomitant]
     Indication: HYPERTRIGLYCERIDAEMIA
     Dosage: 20 OT
     Route: 065
     Dates: start: 20180327
  6. VITAMIN D [Concomitant]
     Active Substance: VITAMIN D NOS
     Indication: MALIGNANT MELANOMA
     Dosage: 100000 OT
     Route: 065
     Dates: start: 20180115
  7. JAKAVI [Suspect]
     Active Substance: RUXOLITINIB
     Dosage: UNK
     Route: 048
     Dates: start: 201907
  8. ASAFLOW [Concomitant]
     Active Substance: ASPIRIN
     Indication: PROPHYLAXIS
     Dosage: 80 OT
     Route: 065
     Dates: start: 20120405
  9. JARDIANCE [Concomitant]
     Active Substance: EMPAGLIFLOZIN
     Indication: TYPE 2 DIABETES MELLITUS
     Dosage: 25 OT
     Route: 065
     Dates: start: 20180703
  10. LIPANTHYLNANO [Concomitant]
     Active Substance: FENOFIBRATE
     Indication: DYSLIPIDAEMIA
     Dosage: 145 OT
     Route: 065
     Dates: start: 20120315
  11. UNI DIAMICRON [Concomitant]
     Active Substance: GLICLAZIDE
     Indication: TYPE 2 DIABETES MELLITUS
     Dosage: 90 OT
     Route: 065
     Dates: start: 20180703

REACTIONS (6)
  - Second primary malignancy [Recovered/Resolved]
  - Nasopharyngitis [Recovered/Resolved]
  - Diarrhoea [Not Recovered/Not Resolved]
  - Paraesthesia [Not Recovered/Not Resolved]
  - Malignant melanoma in situ [Recovered/Resolved]
  - Vertigo [Recovered/Resolved]

NARRATIVE: CASE EVENT DATE: 2019
